FAERS Safety Report 19754770 (Version 1)
Quarter: 2021Q3

REPORT INFORMATION
  Report Type: Spontaneous
  Country: US (occurrence: US)
  Receive Date: 20210825
  Receipt Date: 20210825
  Transmission Date: 20211014
  Serious: Yes (Hospitalization)
  Sender: FDA-Public Use
  Company Number: None

PATIENT
  Sex: Female

DRUGS (11)
  1. AVONEX [Suspect]
     Active Substance: INTERFERON BETA-1A
     Indication: MULTIPLE SCLEROSIS
     Dosage: ?          OTHER DOSE:30 UGM;?
     Route: 030
     Dates: start: 20180422
  2. EYE DROPS SOL [Concomitant]
  3. FISH OIL [Concomitant]
     Active Substance: FISH OIL
  4. MULTI VITAMIN [Concomitant]
     Active Substance: VITAMINS
  5. VITAMIN D3 [Concomitant]
     Active Substance: CHOLECALCIFEROL
  6. BIOTIN [Concomitant]
     Active Substance: BIOTIN
  7. CALCIUM [Concomitant]
     Active Substance: CALCIUM
  8. PREMARIN [Concomitant]
     Active Substance: ESTROGENS, CONJUGATED
  9. FIBERCON [Concomitant]
     Active Substance: CALCIUM POLYCARBOPHIL
  10. ALEVE [Concomitant]
     Active Substance: NAPROXEN SODIUM
  11. VITAMIN C [Concomitant]
     Active Substance: ASCORBIC ACID

REACTIONS (2)
  - Fall [None]
  - Head injury [None]
